FAERS Safety Report 9470446 (Version 1)
Quarter: 2013Q3

REPORT INFORMATION
  Report Type: Spontaneous
  Country: US (occurrence: None)
  Receive Date: 20130820
  Receipt Date: 20130820
  Transmission Date: 20140515
  Serious: Yes (Other)
  Sender: FDA-Public Use
  Company Number: None

PATIENT
  Age: 81 Year
  Sex: Male
  Weight: 86.18 kg

DRUGS (1)
  1. LATANOPROST [Suspect]
     Indication: INTRAOCULAR PRESSURE INCREASED
     Dosage: 1 DROP?ONCE DAILY?INTO THE EYE
     Route: 047
     Dates: start: 20130718, end: 20130818

REACTIONS (8)
  - Haemorrhage [None]
  - Nephrolithiasis [None]
  - Gingivitis [None]
  - Asthenia [None]
  - Headache [None]
  - Transient ischaemic attack [None]
  - Dehydration [None]
  - Condition aggravated [None]
